FAERS Safety Report 10422512 (Version 3)
Quarter: 2014Q3

REPORT INFORMATION
  Report Type: Report from Study
  Country: NL (occurrence: NL)
  Receive Date: 20140901
  Receipt Date: 20140922
  Transmission Date: 20150326
  Serious: Yes (Death, Hospitalization)
  Sender: FDA-Public Use
  Company Number: PHHY2014NL083562

PATIENT
  Sex: Female

DRUGS (8)
  1. TOBI [Suspect]
     Active Substance: TOBRAMYCIN
     Indication: RESPIRATORY TRACT INFECTION
  2. SERETIDE [Concomitant]
     Active Substance: FLUTICASONE FUROATE\SALMETEROL XINAFOATE
     Dosage: UNK
  3. SPIRIVA [Concomitant]
     Active Substance: TIOTROPIUM BROMIDE MONOHYDRATE
     Dosage: UNK
  4. NASONEX [Concomitant]
     Active Substance: MOMETASONE FUROATE
     Dosage: UNK
  5. TOBI [Suspect]
     Active Substance: TOBRAMYCIN
     Indication: OFF LABEL USE
  6. TOBI [Suspect]
     Active Substance: TOBRAMYCIN
     Indication: BRONCHIECTASIS
     Dosage: 300 MG, BID 28 DAYS ON AND OFF
     Route: 055
     Dates: start: 20140714, end: 20140811
  7. ASCAL [Concomitant]
     Active Substance: CARBASALATE
     Dosage: UNK
  8. LIPITOR [Concomitant]
     Active Substance: ATORVASTATIN CALCIUM
     Dosage: 10 MG, QD

REACTIONS (2)
  - Chronic obstructive pulmonary disease [Fatal]
  - Respiratory failure [Fatal]
